FAERS Safety Report 15618630 (Version 1)
Quarter: 2018Q4

REPORT INFORMATION
  Report Type: Spontaneous
  Country: US (occurrence: US)
  Receive Date: 20181114
  Receipt Date: 20181114
  Transmission Date: 20190205
  Serious: Yes (Disabling)
  Sender: FDA-Public Use
  Company Number: None

PATIENT
  Age: 83 Year
  Sex: Female
  Weight: 67.5 kg

DRUGS (9)
  1. OMEPRAZOLE. [Concomitant]
     Active Substance: OMEPRAZOLE
  2. FERROUS SULFATE. [Concomitant]
     Active Substance: FERROUS SULFATE
  3. LORTADINE [Concomitant]
  4. MIRTAZAPINE. [Concomitant]
     Active Substance: MIRTAZAPINE
  5. MIRTAZAPINE. [Suspect]
     Active Substance: MIRTAZAPINE
     Indication: DEPRESSION
     Dosage: ?          QUANTITY:1 TABLET(S);?
     Route: 048
  6. LASIX [Concomitant]
     Active Substance: FUROSEMIDE
  7. MULTIVITAMIN [Concomitant]
     Active Substance: VITAMINS
  8. POTASSIUM CHLORIDE. [Concomitant]
     Active Substance: POTASSIUM CHLORIDE
  9. CBD OIL [Concomitant]
     Active Substance: CANNABIDIOL\HERBALS

REACTIONS (3)
  - Dyskinesia [None]
  - Nervousness [None]
  - Seizure like phenomena [None]

NARRATIVE: CASE EVENT DATE: 20181110
